FAERS Safety Report 8007045-3 (Version None)
Quarter: 2011Q4

REPORT INFORMATION
  Report Type: 
  Country: None (occurrence: None)
  Receive Date: 20111220
  Receipt Date: 20111205
  Transmission Date: 20120403
  Serious: Yes (Hospitalization)
  Sender: FDA-Public Use
  Company Number: 2011030555

PATIENT
  Age: 20 Year
  Sex: Female

DRUGS (1)
  1. PRIVIGEN [Suspect]
     Dosage: INTRAVENOUS BOLUS
     Route: 040

REACTIONS (4)
  - NAUSEA [None]
  - VISUAL IMPAIRMENT [None]
  - HEADACHE [None]
  - VOMITING [None]
